FAERS Safety Report 16057028 (Version 1)
Quarter: 2019Q2

REPORT INFORMATION
  Report Type: Spontaneous
  Country: US (occurrence: US)
  Receive Date: 20190311
  Receipt Date: 20190311
  Transmission Date: 20190711
  Serious: Yes (Disabling)
  Sender: FDA-Public Use
  Company Number: None

PATIENT
  Age: 68 Year
  Sex: Male
  Weight: 152.55 kg

DRUGS (2)
  1. FENOFIBRIC ACID DELAYED-RELEASE [Suspect]
     Active Substance: CHOLINE FENOFIBRATE
     Indication: BLOOD TRIGLYCERIDES
     Dosage: ?          QUANTITY:1 TABLET(S);?
     Route: 048
     Dates: start: 20181029, end: 20190109
  2. FENOFIBRIC ACID DELAYED-RELEASE [Suspect]
     Active Substance: CHOLINE FENOFIBRATE
     Indication: BLOOD CHOLESTEROL
     Dosage: ?          QUANTITY:1 TABLET(S);?
     Route: 048
     Dates: start: 20181029, end: 20190109

REACTIONS (3)
  - Muscle atrophy [None]
  - Muscular weakness [None]
  - Gait disturbance [None]

NARRATIVE: CASE EVENT DATE: 20181031
